FAERS Safety Report 7626535-6 (Version None)
Quarter: 2011Q3

REPORT INFORMATION
  Report Type: 
  Country: None (occurrence: None)
  Receive Date: 20110721
  Receipt Date: 20110630
  Transmission Date: 20111222
  Serious: Yes (Hospitalization)
  Sender: FDA-Public Use
  Company Number: US-GLAXOSMITHKLINE-A0870456A

PATIENT
  Age: 59 Year
  Sex: Female
  Weight: 99.1 kg

DRUGS (8)
  1. METOPROLOL TARTRATE [Concomitant]
  2. INSULIN [Concomitant]
  3. PROTONIX [Concomitant]
  4. LISINOPRIL [Concomitant]
  5. CAPOTEN [Concomitant]
  6. LIPITOR [Concomitant]
  7. AVANDIA [Suspect]
     Indication: DIABETES MELLITUS
     Dosage: 8MG PER DAY
     Route: 048
     Dates: start: 20000428
  8. CLONIDINE [Concomitant]

REACTIONS (6)
  - CARDIAC FAILURE CONGESTIVE [None]
  - MYOCARDIAL INFARCTION [None]
  - PAIN IN EXTREMITY [None]
  - GASTROOESOPHAGEAL REFLUX DISEASE [None]
  - ANAEMIA [None]
  - ARTERIAL OCCLUSIVE DISEASE [None]
